FAERS Safety Report 24416454 (Version 1)
Quarter: 2024Q4

REPORT INFORMATION
  Report Type: Report from Study
  Country: US (occurrence: US)
  Receive Date: 20241009
  Receipt Date: 20241009
  Transmission Date: 20250114
  Serious: Yes (Hospitalization, Other)
  Sender: AMGEN
  Company Number: US-HORIZON THERAPEUTICS-HZN-2024-004199

PATIENT
  Age: 42 Year
  Sex: Female

DRUGS (20)
  1. UPLIZNA [Suspect]
     Active Substance: INEBILIZUMAB-CDON
     Indication: Neuromyelitis optica spectrum disorder
     Dosage: 300 MILLIGRAM, Q6MO, USING 0.2 MICRON FILTER INFUSE V AT 42 MILILITER 0-30 MIN, 125ML/HR AT 31-60 MI
     Route: 042
     Dates: start: 20231116
  2. UPLIZNA [Suspect]
     Active Substance: INEBILIZUMAB-CDON
     Dosage: 300 MILLIGRAM, Q6MO, USING 0.2 MICRON FILTER INFUSE V AT 42 MILILITER 0-30 MIN, 125ML/HR AT 31-60 MI
     Route: 042
     Dates: start: 20240507
  3. PREDNISONE [Suspect]
     Active Substance: PREDNISONE
     Indication: Product used for unknown indication
     Dosage: UNK UNK, QD
     Route: 048
     Dates: start: 20231110, end: 20240105
  4. ACYCLOVIR [Concomitant]
     Active Substance: ACYCLOVIR
     Dosage: 400 MILLIGRAM (2 TABS PO 5 TIMES DAILY)
     Route: 048
     Dates: start: 20240309, end: 20240309
  5. DIPHENHYDRAMINE HYDROCHLORIDE [Concomitant]
     Active Substance: DIPHENHYDRAMINE HYDROCHLORIDE
     Indication: Neuromyelitis optica spectrum disorder
     Dosage: 50 MILLIGRAM PER MILLILITRE, QD, 01 DOSE/168 DAY, ADMINISTER 25MG/5ML IV PUSH OVER 1 MINUTE PRIOR TO
     Route: 042
     Dates: start: 20231115
  6. METHYLPREDNISOLONE SODIUM SUCCINATE [Concomitant]
     Active Substance: METHYLPREDNISOLONE SODIUM SUCCINATE
     Indication: Neuromyelitis optica spectrum disorder
     Dosage: 01 DOSE/168 DAYS, 125 MILLIGRAM, ADD 1 FINAL BSWFI TO VIAL AND ADMINISTER 100ANG (1.6ML) IV PUSH MEE
     Route: 042
     Dates: start: 20231115, end: 20240502
  7. SODIUM CHLORIDE [Concomitant]
     Active Substance: SODIUM CHLORIDE
     Indication: Neuromyelitis optica spectrum disorder
     Dosage: UNK, FLUSH WITH 10 MIL NS BEFORE AND AFTER MEDICATION ADMINISTRATION, AND ONCE DAILY WHEN LINE NOT I
     Route: 042
     Dates: start: 20231115, end: 20240502
  8. ALBUTEROL SULFATE [Concomitant]
     Active Substance: ALBUTEROL SULFATE
     Dosage: UNK UNK, QD
     Route: 048
     Dates: start: 20231110, end: 20231110
  9. XANAX [Concomitant]
     Active Substance: ALPRAZOLAM
     Dosage: 0.5 MILLIGRAM, AS NECESSARY
     Route: 048
     Dates: start: 20231110, end: 20231110
  10. CYMBALTA [Concomitant]
     Active Substance: DULOXETINE HYDROCHLORIDE
     Dosage: 20 MILLIGRAM, QD
     Route: 048
     Dates: start: 20231110, end: 20231110
  11. GABAPENTIN [Concomitant]
     Active Substance: GABAPENTIN
     Dosage: 300 MILLIGRAM, 1 CAP IN AM, 1 CAP, IN AFTERNOON, 2 CAPS BEDTIME
     Route: 048
     Dates: start: 20231110, end: 20231110
  12. OCTAGAM IMMUNE GLOBULIN (HUMAN) [Concomitant]
     Active Substance: HUMAN IMMUNOGLOBULIN G
     Dosage: 100 MILLILITER, AS NECESSARY
     Route: 042
     Dates: start: 20231110, end: 20231110
  13. KEPPRA [Concomitant]
     Active Substance: LEVETIRACETAM
     Dosage: 500 MILLIGRAM, QD
     Route: 048
     Dates: start: 20231110, end: 20231110
  14. OXYBUTYNIN CHLORIDE [Concomitant]
     Active Substance: OXYBUTYNIN CHLORIDE
     Dosage: 10 MILLIGRAM, AS NECESSARY
     Route: 048
     Dates: start: 20231110, end: 20231110
  15. PROTONIX [Concomitant]
     Active Substance: PANTOPRAZOLE SODIUM
     Dosage: 40 MILLIGRAM, QD
     Route: 048
     Dates: start: 20231110, end: 20231110
  16. ZOLOFT [Concomitant]
     Active Substance: SERTRALINE HYDROCHLORIDE
     Dosage: 100 MILLIGRAM, QD
     Route: 048
     Dates: start: 20231110, end: 20231110
  17. FLOMAX [Concomitant]
     Active Substance: TAMSULOSIN HYDROCHLORIDE
     Dosage: 0.4 MILLIGRAM, QD
     Route: 048
     Dates: start: 20231110, end: 20231110
  18. TRAMADOL HCL [Concomitant]
     Active Substance: TRAMADOL HYDROCHLORIDE
     Dosage: 50 MILLIGRAM, AS NECESSARY
     Route: 048
     Dates: start: 20231110, end: 20231110
  19. ZYRTEC [Concomitant]
     Active Substance: CETIRIZINE HYDROCHLORIDE
     Dosage: 10 MILLIGRAM, QD
     Route: 048
     Dates: start: 20231110, end: 20231110
  20. IRON [Concomitant]
     Active Substance: IRON
     Dosage: 325 MILLIGRAM, QD
     Route: 048
     Dates: start: 20231110, end: 20231110

REACTIONS (2)
  - COVID-19 pneumonia [Recovered/Resolved]
  - Decreased immune responsiveness [Unknown]

NARRATIVE: CASE EVENT DATE: 20240101
